FAERS Safety Report 5845479-3 (Version None)
Quarter: 2008Q3

REPORT INFORMATION
  Report Type: 
  Country: None (occurrence: None)
  Receive Date: 20080731
  Receipt Date: 20080603
  Transmission Date: 20090109
  Serious: No
  Sender: FDA-Public Use
  Company Number: US200805000394

PATIENT
  Age: 60 Year
  Sex: Female

DRUGS (4)
  1. BYETTA [Suspect]
     Indication: TYPE 2 DIABETES MELLITUS
     Dosage: 5 UG, 2/D, SUBCUTANEOUS
     Route: 058
     Dates: start: 20080428, end: 20080101
  2. GLIPIZIDE XL (GLIPIZIDE) [Concomitant]
  3. ACTOS [Concomitant]
  4. DRUG USED IN DIABETES [Concomitant]

REACTIONS (9)
  - ABDOMINAL DISTENSION [None]
  - CONSTIPATION [None]
  - DIZZINESS [None]
  - FEELING ABNORMAL [None]
  - HEADACHE [None]
  - MALAISE [None]
  - NAUSEA [None]
  - PAIN [None]
  - VISION BLURRED [None]
